FAERS Safety Report 11885900 (Version 2)
Quarter: 2016Q1

REPORT INFORMATION
  Report Type: Report from Study
  Country: CA (occurrence: CA)
  Receive Date: 20160104
  Receipt Date: 20160120
  Transmission Date: 20160526
  Serious: Yes (Life-Threatening, Hospitalization, Other)
  Sender: FDA-Public Use
  Company Number: CA-ABBVIE-15K-028-1529855-00

PATIENT
  Age: 54 Year
  Sex: Female
  Weight: 134 kg

DRUGS (5)
  1. HUMIRA [Suspect]
     Active Substance: ADALIMUMAB
     Indication: CROHN^S DISEASE
     Route: 058
     Dates: start: 20130214
  2. OMEGA 3 [Concomitant]
     Active Substance: OMEGA-3 FATTY ACIDS
     Indication: PRODUCT USED FOR UNKNOWN INDICATION
  3. IMURAN [Concomitant]
     Active Substance: AZATHIOPRINE
     Indication: CROHN^S DISEASE
     Dates: start: 2013
  4. RAMIPRIL. [Concomitant]
     Active Substance: RAMIPRIL
     Indication: BLOOD PRESSURE INCREASED
  5. VERAPAMIL [Concomitant]
     Active Substance: VERAPAMIL HYDROCHLORIDE
     Indication: BLOOD PRESSURE INCREASED

REACTIONS (24)
  - Pyrexia [Unknown]
  - Wound dehiscence [Unknown]
  - Gastrointestinal anastomotic leak [Unknown]
  - Abdominal discomfort [Not Recovered/Not Resolved]
  - Impaired healing [Unknown]
  - Painful respiration [Not Recovered/Not Resolved]
  - Gastrointestinal surgery [Unknown]
  - Procedural intestinal perforation [Unknown]
  - Stoma site ischaemia [Unknown]
  - Post procedural complication [Unknown]
  - Abdominal adhesions [Unknown]
  - Abdominal distension [Unknown]
  - Liver disorder [Unknown]
  - Postoperative renal failure [Unknown]
  - Post procedural sepsis [Unknown]
  - Intestinal anastomosis complication [Unknown]
  - Atelectasis [Unknown]
  - Abdominal pain upper [Unknown]
  - Abdominal pain [Not Recovered/Not Resolved]
  - Hypoxia [Unknown]
  - Obesity [Unknown]
  - Anastomotic complication [Unknown]
  - Small intestinal perforation [Unknown]
  - Malnutrition [Unknown]

NARRATIVE: CASE EVENT DATE: 201512
